FAERS Safety Report 6157019-2 (Version None)
Quarter: 2009Q2

REPORT INFORMATION
  Report Type: 
  Country: None (occurrence: None)
  Receive Date: 20090416
  Receipt Date: 20090402
  Transmission Date: 20091009
  Serious: No
  Sender: FDA-Public Use
  Company Number: GB-AVENTIS-200911950GDDC

PATIENT
  Age: 39 Year
  Sex: Female

DRUGS (6)
  1. ARAVA [Suspect]
     Indication: RHEUMATOID ARTHRITIS
     Route: 048
     Dates: start: 20040610, end: 20081215
  2. NAPROXEN [Suspect]
     Dosage: DOSE: UNK
  3. LANSOPRAZOLE [Suspect]
     Dosage: DOSE: UNK
  4. CODEINE PHOSPHATE [Suspect]
     Dosage: DOSE: UNK
  5. PARACETAMOL [Suspect]
     Dosage: DOSE: UNK
  6. AMITRIPTLINE HYDROCHLORIDE TAB [Suspect]
     Dosage: DOSE: UNK

REACTIONS (1)
  - DRUG EXPOSURE DURING PREGNANCY [None]
